FAERS Safety Report 15112413 (Version 1)
Quarter: 2018Q3

REPORT INFORMATION
  Report Type: Spontaneous
  Country: DE (occurrence: DE)
  Receive Date: 20180705
  Receipt Date: 20180705
  Transmission Date: 20181010
  Serious: Yes (Hospitalization, Other)
  Sender: FDA-Public Use
  Company Number: DE-CELGENEUS-DEU-20180610534

PATIENT
  Age: 48 Year
  Sex: Female
  Weight: 72 kg

DRUGS (5)
  1. OTEZLA [Suspect]
     Active Substance: APREMILAST
     Indication: PSORIATIC ARTHROPATHY
     Dosage: 60 MILLIGRAM
     Route: 048
     Dates: start: 20171218
  2. DULOXITIN [Concomitant]
     Indication: DEPRESSION
     Dosage: 90 MILLIGRAM
     Route: 065
     Dates: start: 2017
  3. LODOTRA [Concomitant]
     Active Substance: PREDNISONE
     Indication: PSORIATIC ARTHROPATHY
     Dosage: 2 MILLIGRAM
     Route: 065
     Dates: start: 201208
  4. ARAVA [Concomitant]
     Active Substance: LEFLUNOMIDE
     Indication: PSORIATIC ARTHROPATHY
     Dosage: 20 MILLIGRAM
     Route: 065
     Dates: start: 201205
  5. INDOMETACIN [Concomitant]
     Active Substance: INDOMETHACIN
     Indication: PSORIATIC ARTHROPATHY
     Dosage: 75 MILLIGRAM
     Route: 065
     Dates: start: 201704

REACTIONS (3)
  - Negative thoughts [Recovered/Resolved]
  - Depression [Recovered/Resolved]
  - Suicide attempt [Recovered/Resolved]
